FAERS Safety Report 4603158-4 (Version None)
Quarter: 2005Q1

REPORT INFORMATION
  Report Type: 
  Country: None (occurrence: None)
  Receive Date: 20050308
  Receipt Date: 20050222
  Transmission Date: 20050727
  Serious: Yes (Hospitalization)
  Sender: FDA-Public Use
  Company Number: IBF20050008

PATIENT
  Age: 7 Year
  Sex: Female

DRUGS (1)
  1. IBUPROFEN [Suspect]
     Indication: PYREXIA
     Dosage: 6 MG/KG PO
     Route: 048
     Dates: start: 19980519, end: 19980519

REACTIONS (6)
  - BLOOD PRESSURE DIASTOLIC DECREASED [None]
  - C-REACTIVE PROTEIN INCREASED [None]
  - HAEMOGLOBIN INCREASED [None]
  - HYPOTHERMIA [None]
  - LUNG CONSOLIDATION [None]
  - PLATELET COUNT DECREASED [None]
